FAERS Safety Report 8880401 (Version 1)
Quarter: 2012Q4

REPORT INFORMATION
  Report Type: 
  Country: NL (occurrence: NL)
  Receive Date: 20121101
  Receipt Date: 20121101
  Transmission Date: 20130627
  Serious: Yes (Other)
  Sender: FDA-Public Use
  Company Number: PHHY2012NL040410

PATIENT
  Age: 75 Year
  Sex: Male

DRUGS (7)
  1. ZOMETA [Suspect]
     Indication: PROSTATE CANCER METASTATIC
     Dosage: 4 mg/100 ml, 1x per 42 days
  2. ZOMETA [Suspect]
     Dosage: 4 mg/100 ml, 1x per 42 days
     Dates: start: 20100402
  3. ZOMETA [Suspect]
     Dosage: 4 mg/100 ml, 1x per 42 days
     Dates: start: 20120329
  4. ZOMETA [Suspect]
     Dosage: 4 mg/100 ml, 1x per 42 days
     Dates: start: 20120510
  5. ZOMETA [Suspect]
     Dosage: 4 mg/100 ml, 1x per 42 days
     Dates: start: 20120917
  6. ZOMETA [Suspect]
     Dosage: 4 mg/100 ml, 1x per 42 days
     Dates: start: 20121029
  7. ZYTIGA [Concomitant]

REACTIONS (6)
  - Neoplasm progression [Not Recovered/Not Resolved]
  - Malignant neoplasm progression [Not Recovered/Not Resolved]
  - General physical health deterioration [Not Recovered/Not Resolved]
  - Prostatic specific antigen increased [Not Recovered/Not Resolved]
  - Wrist fracture [Not Recovered/Not Resolved]
  - Diarrhoea [Not Recovered/Not Resolved]
